FAERS Safety Report 9715652 (Version 2)
Quarter: 2016Q2

REPORT INFORMATION
  Report Type: Report from Study
  Country: US (occurrence: US)
  Receive Date: 20131127
  Receipt Date: 20160407
  Transmission Date: 20160815
  Serious: Yes (Death)
  Sender: FDA-Public Use
  Company Number: US-ROCHE-1310375

PATIENT
  Age: 86 Year
  Sex: Male

DRUGS (20)
  1. LUCENTIS [Suspect]
     Active Substance: RANIBIZUMAB
     Indication: AGE-RELATED MACULAR DEGENERATION
     Dosage: OS
     Route: 050
     Dates: start: 2009
  2. XELODA [Suspect]
     Active Substance: CAPECITABINE
     Indication: OESOPHAGEAL CARCINOMA
     Dosage: 8 TABLETS BID FOR 14 DAYS THEN OFF FOR 7 DAYS
     Route: 048
  3. TEARS (UNK INGREDIENTS) [Concomitant]
     Route: 065
  4. CRESTOR [Concomitant]
     Active Substance: ROSUVASTATIN CALCIUM
  5. INSULIN [Concomitant]
     Active Substance: INSULIN NOS
  6. FUROSEMIDE. [Concomitant]
     Active Substance: FUROSEMIDE
  7. AVODART [Concomitant]
     Active Substance: DUTASTERIDE
  8. ALLOPURINOL. [Concomitant]
     Active Substance: ALLOPURINOL
  9. VITAMIN C [Concomitant]
     Active Substance: ASCORBIC ACID
  10. NORVASC [Concomitant]
     Active Substance: AMLODIPINE BESYLATE
  11. GABAPENTIN. [Concomitant]
     Active Substance: GABAPENTIN
  12. FINASTERIDE. [Concomitant]
     Active Substance: FINASTERIDE
  13. LUCENTIS [Suspect]
     Active Substance: RANIBIZUMAB
     Indication: NEOVASCULAR AGE-RELATED MACULAR DEGENERATION
     Dosage: OS
     Route: 050
  14. LISINOPRIL. [Concomitant]
     Active Substance: LISINOPRIL
  15. FISH OIL [Concomitant]
     Active Substance: FISH OIL
  16. TRICOR [Concomitant]
     Active Substance: FENOFIBRATE
  17. BENICAR [Concomitant]
     Active Substance: OLMESARTAN MEDOXOMIL
  18. AVASTIN [Suspect]
     Active Substance: BEVACIZUMAB
     Indication: PRODUCT USED FOR UNKNOWN INDICATION
     Route: 065
  19. NEURONTIN [Concomitant]
     Active Substance: GABAPENTIN
  20. VYTORIN [Concomitant]
     Active Substance: EZETIMIBE\SIMVASTATIN

REACTIONS (10)
  - Death [Fatal]
  - Visual acuity reduced [Unknown]
  - Visual impairment [Unknown]
  - Metamorphopsia [Unknown]
  - Cataract nuclear [Unknown]
  - Product use issue [Unknown]
  - Asthenopia [Unknown]
  - Vitreous floaters [Unknown]
  - Photopsia [Unknown]
  - Detachment of retinal pigment epithelium [Unknown]

NARRATIVE: CASE EVENT DATE: 20130625
